FAERS Safety Report 8524248-X (Version None)
Quarter: 2012Q3

REPORT INFORMATION
  Report Type: 
  Country: None (occurrence: None)
  Receive Date: 20120720
  Receipt Date: 20120718
  Transmission Date: 20120928
  Serious: Yes (Hospitalization)
  Sender: FDA-Public Use
  Company Number: VE-PFIZER INC-2012149952

PATIENT
  Age: 55 Year
  Sex: Female

DRUGS (3)
  1. TENORMIN [Concomitant]
     Indication: TACHYCARDIA
     Dosage: 50 MG, 1X/DAY
     Route: 048
     Dates: start: 20120301
  2. AMIODARONE HCL [Concomitant]
     Indication: TACHYCARDIA
     Dosage: 200 MG, 1X/DAY
     Route: 048
     Dates: start: 20120301
  3. LIPITOR [Suspect]
     Indication: HYPERCHOLESTEROLAEMIA
     Dosage: 20 MG, 1X/DAY
     Route: 048
     Dates: start: 20100101, end: 20120701

REACTIONS (1)
  - TACHYCARDIA [None]
